FAERS Safety Report 4655615-2 (Version None)
Quarter: 2005Q2

REPORT INFORMATION
  Report Type: 
  Country: None (occurrence: None)
  Receive Date: 20050505
  Receipt Date: 20050419
  Transmission Date: 20051028
  Serious: Yes (Hospitalization)
  Sender: FDA-Public Use
  Company Number: 200504IM000128

PATIENT
  Age: 57 Year
  Sex: Male
  Weight: 89.5 kg

DRUGS (4)
  1. INTERFERON ALFACON-1 [Suspect]
     Indication: HEPATITIS C
     Dosage: 15 UG, QD, SUBCUTANEOUS
     Route: 058
     Dates: start: 20041026, end: 20050403
  2. RIBAVIRIN [Suspect]
     Indication: HEPATITIS C
     Dosage: 600 MG, QD, ORAL
     Route: 048
     Dates: start: 20041026, end: 20050403
  3. GLUCOVANCE [Concomitant]
  4. ATENOLOL [Concomitant]

REACTIONS (2)
  - PNEUMONIA [None]
  - RHABDOMYOLYSIS [None]
